FAERS Safety Report 6980416-X (Version None)
Quarter: 2010Q3

REPORT INFORMATION
  Report Type: 
  Country: None (occurrence: None)
  Receive Date: 20100914
  Receipt Date: 20100714
  Transmission Date: 20110219
  Serious: No
  Sender: FDA-Public Use
  Company Number: US-ABBOTT-10P-163-0658115-00

PATIENT
  Sex: Male
  Weight: 49.94 kg

DRUGS (2)
  1. DEPAKOTE [Suspect]
     Indication: CONVULSION PROPHYLAXIS
     Dates: start: 20100601
  2. DEPAKOTE [Suspect]
     Dates: start: 20100617

REACTIONS (2)
  - ABDOMINAL DISCOMFORT [None]
  - MOOD ALTERED [None]
